FAERS Safety Report 24814588 (Version 1)
Quarter: 2025Q1

REPORT INFORMATION
  Report Type: Spontaneous
  Country: DE (occurrence: DE)
  Receive Date: 20250107
  Receipt Date: 20250107
  Transmission Date: 20250409
  Serious: Yes (Other)
  Sender: TEVA
  Company Number: None

PATIENT
  Age: 42 Year
  Sex: Female
  Weight: 68 kg

DRUGS (2)
  1. HYDROXYCHLOROQUINE [Suspect]
     Active Substance: HYDROXYCHLOROQUINE
     Indication: Systemic lupus erythematosus
     Dosage: 200MG MORNING AND EVENING
     Route: 048
     Dates: start: 202410, end: 202411
  2. HYDROXYCHLOROQUINE [Suspect]
     Active Substance: HYDROXYCHLOROQUINE
     Indication: Systemic lupus erythematosus
     Route: 048
     Dates: start: 202412, end: 202412

REACTIONS (7)
  - Suicidal ideation [Recovered/Resolved]
  - Muscle tightness [Recovered/Resolved]
  - Muscle tightness [Recovered/Resolved]
  - Mobility decreased [Recovered/Resolved]
  - Photophobia [Recovered/Resolved]
  - Muscle tightness [Recovered/Resolved]
  - Depression [Recovered/Resolved]

NARRATIVE: CASE EVENT DATE: 20241001
